FAERS Safety Report 8830330 (Version 2)
Quarter: 2012Q4

REPORT INFORMATION
  Report Type: Spontaneous
  Country: US (occurrence: None)
  Receive Date: 20121004
  Receipt Date: 20121022
  Transmission Date: 20130627
  Serious: Yes (Other)
  Sender: FDA-Public Use
  Company Number: JPI-P-025391

PATIENT
  Age: 76 Year
  Sex: Female
  Weight: 90.72 kg

DRUGS (5)
  1. XYREM (500 MILLIGRAM/ MILLILITERS, SOLUTION) (SODIUM OXYBATE) [Suspect]
     Indication: CATAPLEXY
     Route: 048
     Dates: start: 200406
  2. XYREM (500 MILLIGRAM/ MILLILITERS, SOLUTION) (SODIUM OXYBATE) [Suspect]
     Indication: CATAPLEXY
     Dosage: 3.25 gm first dose/2.25 gm second dose
     Route: 048
  3. MODAFINIL [Concomitant]
  4. ALPRAZOLAM [Concomitant]
  5. LEVOTHYROXINE SODIUM [Concomitant]

REACTIONS (3)
  - Arthropathy [None]
  - Knee arthroplasty [None]
  - Activities of daily living impaired [None]
